FAERS Safety Report 5377221-7 (Version None)
Quarter: 2007Q3

REPORT INFORMATION
  Report Type: 
  Country: None (occurrence: None)
  Receive Date: 20070703
  Receipt Date: 20070628
  Transmission Date: 20080115
  Serious: Yes (Hospitalization)
  Sender: FDA-Public Use
  Company Number: US-AMGEN-US227903

PATIENT
  Sex: Male

DRUGS (3)
  1. PANITUMUMAB [Suspect]
     Indication: SQUAMOUS CELL CARCINOMA
     Route: 042
     Dates: start: 20070417
  2. DOCETAXEL [Concomitant]
     Indication: METASTATIC NEOPLASM
     Route: 042
  3. CISPLATIN [Concomitant]
     Indication: METASTATIC NEOPLASM
     Route: 042

REACTIONS (3)
  - NEUTROPENIA [None]
  - SEPTIC SHOCK [None]
  - THROMBOCYTOPENIA [None]
